FAERS Safety Report 5218453-8 (Version None)
Quarter: 2007Q1

REPORT INFORMATION
  Report Type: 
  Country: None (occurrence: None)
  Receive Date: 20061201
  Receipt Date: 20051118
  Transmission Date: 20070707
  Serious: Yes (Other)
  Sender: FDA-Public Use
  Company Number: SUS1-2005-00846

PATIENT
  Sex: Male

DRUGS (1)
  1. ADDERALL 10 [Suspect]

REACTIONS (2)
  - HEART RATE INCREASED [None]
  - TREMOR [None]
